FAERS Safety Report 4674456-3 (Version None)
Quarter: 2005Q2

REPORT INFORMATION
  Report Type: 
  Country: None (occurrence: None)
  Receive Date: 20050524
  Receipt Date: 20050506
  Transmission Date: 20051028
  Serious: Yes (Other)
  Sender: FDA-Public Use
  Company Number: USA050597503

PATIENT
  Age: 66 Year
  Sex: Male

DRUGS (8)
  1. HUMALOG [Suspect]
     Indication: DIABETES MELLITUS
     Dates: start: 20000101
  2. LISINOPRIL [Concomitant]
  3. LANTUS [Concomitant]
  4. CALCITRIOL [Concomitant]
  5. TOPROL-XL [Concomitant]
  6. LIPITOR [Concomitant]
  7. DIGITEK (DIGOXIN - SANDOZ) [Concomitant]
  8. ASPIRIN [Concomitant]

REACTIONS (3)
  - BLOOD GLUCOSE INCREASED [None]
  - PERITONEAL DIALYSIS [None]
  - PHARMACEUTICAL PRODUCT COMPLAINT [None]
